FAERS Safety Report 11833141 (Version 1)
Quarter: 2015Q4

REPORT INFORMATION
  Report Type: Other
  Country: ES (occurrence: ES)
  Receive Date: 20151214
  Receipt Date: 20151214
  Transmission Date: 20160305
  Serious: Yes (Other)
  Sender: FDA-Public Use
  Company Number: ES-ENDO PHARMACEUTICALS INC-2015-004738

PATIENT
  Age: 47 Year
  Sex: Male

DRUGS (1)
  1. PROPRANOLOL HCL TABLETS 20MG [Suspect]
     Active Substance: PROPRANOLOL HYDROCHLORIDE
     Indication: ESSENTIAL TREMOR
     Route: 065

REACTIONS (1)
  - Atrial fibrillation [Recovered/Resolved]
